FAERS Safety Report 20367310 (Version 7)
Quarter: 2022Q2

REPORT INFORMATION
  Report Type: Spontaneous
  Country: US (occurrence: US)
  Receive Date: 20220124
  Receipt Date: 20220617
  Transmission Date: 20220721
  Serious: Yes (Other)
  Sender: FDA-Public Use
  Company Number: US-JNJFOC-20220134700

PATIENT
  Age: 9 Decade
  Sex: Female

DRUGS (3)
  1. OPSUMIT [Suspect]
     Active Substance: MACITENTAN
     Indication: Pulmonary hypertension
     Route: 048
     Dates: start: 2010
  2. OPSUMIT [Suspect]
     Active Substance: MACITENTAN
     Route: 048
     Dates: start: 20190913
  3. OXYGEN [Concomitant]
     Active Substance: OXYGEN
     Dates: start: 2010

REACTIONS (23)
  - Anaemia [Recovering/Resolving]
  - Pulmonary hypertension [Unknown]
  - Diverticulitis [Not Recovered/Not Resolved]
  - Scleroderma [Unknown]
  - Peripheral swelling [Not Recovered/Not Resolved]
  - Bacterial test positive [Unknown]
  - Headache [Not Recovered/Not Resolved]
  - Anxiety [Not Recovered/Not Resolved]
  - Hypoacusis [Unknown]
  - Epistaxis [Not Recovered/Not Resolved]
  - Eating disorder symptom [Unknown]
  - Musculoskeletal stiffness [Unknown]
  - Illness [Recovering/Resolving]
  - Tongue haemorrhage [Not Recovered/Not Resolved]
  - Pain [Not Recovered/Not Resolved]
  - Chest discomfort [Recovering/Resolving]
  - Asthenia [Unknown]
  - Hypoaesthesia [Unknown]
  - Weight decreased [Unknown]
  - Gastrointestinal mucosal disorder [Unknown]
  - Nausea [Unknown]
  - Visual impairment [Unknown]
  - Product dose omission issue [Unknown]

NARRATIVE: CASE EVENT DATE: 20210101
